FAERS Safety Report 6509859-5 (Version None)
Quarter: 2009Q4

REPORT INFORMATION
  Report Type: 
  Country: None (occurrence: None)
  Receive Date: 20091221
  Receipt Date: 20091221
  Transmission Date: 20100525
  Serious: Yes (Disabling)
  Sender: FDA-Public Use
  Company Number: None

PATIENT
  Age: 31 Year
  Sex: Female
  Weight: 56.6996 kg

DRUGS (4)
  1. NEURONTIN 6% + KETOPROFEN 10% + LIDOCAINE 5% (COMPOUNDED) [Suspect]
     Indication: COCCYDYNIA
     Dosage: APPLY VAGINALLY AT BEDTIME 1X DAY TRANSDERMAL
     Route: 062
     Dates: start: 20090423, end: 20090513
  2. NEURONTIN 6% + KETOPROFEN 10% + LIDOCAINE 5% (COMPOUNDED) [Suspect]
     Indication: NEUROPATHY PERIPHERAL
     Dosage: APPLY VAGINALLY AT BEDTIME 1X DAY TRANSDERMAL
     Route: 062
     Dates: start: 20090423, end: 20090513
  3. GABAPENTIN [Suspect]
     Indication: COCCYDYNIA
     Dosage: 300MG 2X DAY PO
     Route: 048
     Dates: start: 20090918, end: 20091002
  4. GABAPENTIN [Suspect]
     Indication: NEUROPATHY PERIPHERAL
     Dosage: 300MG 2X DAY PO
     Route: 048
     Dates: start: 20090918, end: 20091002

REACTIONS (32)
  - ABDOMINAL PAIN UPPER [None]
  - ARTHRALGIA [None]
  - AUTONOMIC NERVOUS SYSTEM IMBALANCE [None]
  - BONE PAIN [None]
  - BURNING SENSATION [None]
  - CHEST PAIN [None]
  - DECREASED APPETITE [None]
  - DEPRESSION [None]
  - DIPLOPIA [None]
  - DYSPEPSIA [None]
  - DYSPNOEA [None]
  - EAR PAIN [None]
  - FEELING DRUNK [None]
  - HYPERACUSIS [None]
  - HYPOAESTHESIA [None]
  - MUSCLE CONTRACTIONS INVOLUNTARY [None]
  - MUSCULOSKELETAL CHEST PAIN [None]
  - NEUROPATHY PERIPHERAL [None]
  - NIGHT SWEATS [None]
  - ORAL DISCOMFORT [None]
  - ORAL PAIN [None]
  - PARAESTHESIA [None]
  - PHOTOPHOBIA [None]
  - PRURITUS GENERALISED [None]
  - SENSORY LOSS [None]
  - TANDEM GAIT TEST ABNORMAL [None]
  - TEMPOROMANDIBULAR JOINT SYNDROME [None]
  - THROAT IRRITATION [None]
  - TINNITUS [None]
  - TOOTHACHE [None]
  - VEIN DISORDER [None]
  - WEIGHT DECREASED [None]
